FAERS Safety Report 4675007-X (Version None)
Quarter: 2005Q2

REPORT INFORMATION
  Report Type: 
  Country: None (occurrence: None)
  Receive Date: 20050526
  Receipt Date: 20050418
  Transmission Date: 20051028
  Serious: Yes (Death)
  Sender: FDA-Public Use
  Company Number: GB-MERCK-0504GBR00097

PATIENT
  Age: 78 Year
  Sex: Male

DRUGS (11)
  1. ZOCOR [Suspect]
     Route: 048
  2. TIOTROPIUM BROMIDE [Suspect]
     Indication: CHRONIC OBSTRUCTIVE PULMONARY DISEASE
     Route: 055
     Dates: start: 20040101
  3. ACETAMINOPHEN AND CODEINE PHOSPHATE [Suspect]
     Route: 065
  4. FUROSEMIDE [Suspect]
     Route: 065
  5. ASPIRIN [Suspect]
     Route: 065
  6. NICORANDIL [Suspect]
     Route: 065
  7. RABEPRAZOLE SODIUM [Suspect]
     Route: 065
  8. FLUTICASONE PROPIONATE AND SALMETEROL XINAFOATE [Suspect]
     Route: 065
  9. ALBUTEROL [Suspect]
     Route: 065
  10. ISOSORBIDE [Suspect]
     Route: 065
  11. BISOPROLOL [Suspect]
     Route: 065

REACTIONS (2)
  - LEFT VENTRICULAR FAILURE [None]
  - MYOCARDIAL ISCHAEMIA [None]
